FAERS Safety Report 7077475-5 (Version None)
Quarter: 2010Q4

REPORT INFORMATION
  Report Type: 
  Country: None (occurrence: None)
  Receive Date: 20101101
  Receipt Date: 20101018
  Transmission Date: 20110411
  Serious: Yes (Hospitalization, Disabling, Other)
  Sender: FDA-Public Use
  Company Number: CH-ELI_LILLY_AND_COMPANY-CH201007006431

PATIENT
  Sex: Male
  Weight: 102 kg

DRUGS (1)
  1. EFFIENT [Suspect]
     Indication: ACUTE CORONARY SYNDROME
     Dosage: UNK, UNKNOWN

REACTIONS (2)
  - CEREBELLAR HAEMORRHAGE [None]
  - CEREBELLAR INFARCTION [None]
